FAERS Safety Report 7334833-9 (Version None)
Quarter: 2011Q1

REPORT INFORMATION
  Report Type: 
  Country: None (occurrence: None)
  Receive Date: 20110307
  Receipt Date: 20110221
  Transmission Date: 20110831
  Serious: Yes (Other)
  Sender: FDA-Public Use
  Company Number: PHHY2011NL14158

PATIENT
  Sex: Female

DRUGS (1)
  1. AFINITOR [Suspect]
     Indication: RENAL CELL CARCINOMA
     Dosage: UNK
     Dates: start: 20091123

REACTIONS (4)
  - LUNG DISORDER [None]
  - DRUG INEFFECTIVE [None]
  - COUGH [None]
  - HAEMOGLOBIN DECREASED [None]
